FAERS Safety Report 18126638 (Version 6)
Quarter: 2020Q3

REPORT INFORMATION
  Report Type: Spontaneous
  Country: US (occurrence: US)
  Receive Date: 20200809
  Receipt Date: 20200906
  Transmission Date: 20201103
  Serious: No
  Sender: FDA-Public Use
  Company Number: US-AMGEN-USASP2020125048

PATIENT
  Age: 71 Year
  Sex: Female
  Weight: 65.31 kg

DRUGS (3)
  1. NEULASTA [Suspect]
     Active Substance: PEGFILGRASTIM
     Dosage: 10 MILLIGRAM  SINCE 8 MONTH
     Route: 065
     Dates: start: 202001
  2. NEULASTA [Suspect]
     Active Substance: PEGFILGRASTIM
     Indication: NEUTROPENIA
     Dosage: 10 MILLIGRAM  SINCE 8 MONTH
     Route: 065
     Dates: start: 202001
  3. NEULASTA [Suspect]
     Active Substance: PEGFILGRASTIM
     Dosage: 10 MILLIGRAM  SINCE 8 MONTH
     Route: 065
     Dates: start: 202001

REACTIONS (1)
  - Device malfunction [Unknown]

NARRATIVE: CASE EVENT DATE: 202007
